FAERS Safety Report 15809596 (Version 2)
Quarter: 2019Q1

REPORT INFORMATION
  Report Type: Report from Study
  Country: US (occurrence: US)
  Receive Date: 20190111
  Receipt Date: 20190130
  Transmission Date: 20190417
  Serious: Yes (Other)
  Sender: FDA-Public Use
  Company Number: US-ROCHE-2243155

PATIENT
  Age: 38 Year
  Sex: Female

DRUGS (61)
  1. RITUXIMAB. [Suspect]
     Active Substance: RITUXIMAB
     Route: 065
     Dates: start: 20170413
  2. BELIMUMAB [Suspect]
     Active Substance: BELIMUMAB
     Route: 065
     Dates: start: 20170511
  3. BELIMUMAB [Suspect]
     Active Substance: BELIMUMAB
     Route: 065
     Dates: start: 20170524
  4. BELIMUMAB [Suspect]
     Active Substance: BELIMUMAB
     Route: 065
     Dates: start: 20171011
  5. SOLU-MEDROL [Suspect]
     Active Substance: METHYLPREDNISOLONE SODIUM SUCCINATE
     Indication: PREMEDICATION
     Route: 065
     Dates: start: 20170330
  6. DIPHENHYDRAMINE. [Concomitant]
     Active Substance: DIPHENHYDRAMINE
     Indication: PREMEDICATION
     Dosage: GIVEN 60 MINUTES (+/- 15?MINUTES) PRIOR TO RITUXIMAB
     Route: 065
     Dates: start: 20170330
  7. DAPSONE. [Concomitant]
     Active Substance: DAPSONE
     Route: 048
     Dates: start: 20170330
  8. AZITHROMYCIN ANHYDROUS. [Concomitant]
     Active Substance: AZITHROMYCIN ANHYDROUS
     Indication: NASAL CONGESTION
     Route: 048
     Dates: start: 20170325, end: 20170329
  9. BELIMUMAB [Suspect]
     Active Substance: BELIMUMAB
     Indication: LUPUS NEPHRITIS
     Route: 065
     Dates: start: 20170426
  10. BELIMUMAB [Suspect]
     Active Substance: BELIMUMAB
     Route: 065
     Dates: start: 20170726
  11. BELIMUMAB [Suspect]
     Active Substance: BELIMUMAB
     Route: 065
     Dates: start: 20170913
  12. BELIMUMAB [Suspect]
     Active Substance: BELIMUMAB
     Route: 065
     Dates: start: 20171206
  13. BELIMUMAB [Suspect]
     Active Substance: BELIMUMAB
     Route: 065
     Dates: start: 20180111
  14. PREDNISONE. [Suspect]
     Active Substance: PREDNISONE
     Indication: LUPUS NEPHRITIS
     Route: 065
     Dates: start: 20170303, end: 20170329
  15. PREDNISONE. [Suspect]
     Active Substance: PREDNISONE
     Route: 065
     Dates: start: 20170728, end: 20170803
  16. ACETAMINOPHEN. [Concomitant]
     Active Substance: ACETAMINOPHEN
     Dosage: GIVEN 30 MINUTES PRIOR TO?RITUXIMAB
     Route: 065
     Dates: start: 20170330
  17. ACETAMINOPHEN. [Concomitant]
     Active Substance: ACETAMINOPHEN
     Route: 065
     Dates: start: 20170413
  18. VICKS NYQUIL [Concomitant]
     Active Substance: ACETAMINOPHEN\DEXTROMETHORPHAN HYDROBROMIDE\DOXYLAMINE SUCCINATE
     Indication: NASAL CONGESTION
     Dosage: LIQUID
     Route: 048
     Dates: start: 20170320, end: 20170404
  19. NYSTATIN. [Concomitant]
     Active Substance: NYSTATIN
     Indication: CANDIDA INFECTION
     Dosage: SWISH AND SPIT
     Route: 048
     Dates: start: 20170427, end: 20170531
  20. MIRENA [Concomitant]
     Active Substance: LEVONORGESTREL
     Indication: CONTRACEPTION
     Dosage: UTERINE IMPLANT
     Route: 065
     Dates: start: 2015
  21. BELIMUMAB [Suspect]
     Active Substance: BELIMUMAB
     Route: 065
     Dates: start: 20180307
  22. PREDNISONE. [Suspect]
     Active Substance: PREDNISONE
     Route: 065
     Dates: start: 20170420, end: 20170503
  23. PREDNISONE. [Suspect]
     Active Substance: PREDNISONE
     Route: 065
     Dates: start: 20170601, end: 20170601
  24. PREDNISONE. [Suspect]
     Active Substance: PREDNISONE
     Route: 065
     Dates: start: 20170630, end: 20170706
  25. PREDNISONE. [Suspect]
     Active Substance: PREDNISONE
     Route: 065
     Dates: start: 20170721, end: 20170725
  26. LISINOPRIL. [Concomitant]
     Active Substance: LISINOPRIL
     Route: 048
     Dates: start: 20170316
  27. CLOBETASOL PROPIONATE. [Concomitant]
     Active Substance: CLOBETASOL PROPIONATE
     Indication: ALOPECIA
     Route: 061
     Dates: start: 20171028
  28. BELIMUMAB [Suspect]
     Active Substance: BELIMUMAB
     Route: 065
     Dates: start: 20170814
  29. PREDNISONE. [Suspect]
     Active Substance: PREDNISONE
     Route: 065
     Dates: start: 20170525, end: 20170531
  30. ASPIRIN. [Concomitant]
     Active Substance: ASPIRIN
     Indication: PROPHYLAXIS
     Route: 048
     Dates: start: 20170302, end: 20170315
  31. DAPSONE. [Concomitant]
     Active Substance: DAPSONE
     Indication: PROPHYLAXIS
     Route: 048
     Dates: start: 20170126, end: 20170329
  32. FAMOTIDINE. [Concomitant]
     Active Substance: FAMOTIDINE
     Indication: PROPHYLAXIS
     Route: 048
     Dates: start: 20170302, end: 20170524
  33. MYCOPHENOLATE MOFETIL. [Concomitant]
     Active Substance: MYCOPHENOLATE MOFETIL
     Indication: SYSTEMIC LUPUS ERYTHEMATOSUS
     Route: 048
     Dates: start: 20160901, end: 20170322
  34. MELATONIN [Concomitant]
     Active Substance: MELATONIN
     Route: 048
     Dates: start: 20170302
  35. HALLS COUGH LOZENGE [Concomitant]
     Indication: COUGH
     Route: 048
     Dates: start: 20170320, end: 20170330
  36. RITUXIMAB. [Suspect]
     Active Substance: RITUXIMAB
     Indication: LUPUS NEPHRITIS
     Route: 065
     Dates: start: 20170330
  37. PREDNISONE. [Suspect]
     Active Substance: PREDNISONE
     Route: 065
     Dates: start: 20170518, end: 20170524
  38. SOLU-MEDROL [Suspect]
     Active Substance: METHYLPREDNISOLONE SODIUM SUCCINATE
     Route: 065
     Dates: start: 20170413
  39. COMBIGAN [Concomitant]
     Active Substance: BRIMONIDINE TARTRATE\TIMOLOL MALEATE
     Indication: INTRAOCULAR PRESSURE INCREASED
     Route: 031
     Dates: start: 20170515, end: 20170524
  40. NYSTATIN. [Concomitant]
     Active Substance: NYSTATIN
     Dosage: SWISH AND SPIT
     Route: 048
     Dates: start: 20170710, end: 20170717
  41. BELIMUMAB [Suspect]
     Active Substance: BELIMUMAB
     Route: 065
     Dates: start: 20171108
  42. BELIMUMAB [Suspect]
     Active Substance: BELIMUMAB
     Route: 065
     Dates: start: 20180207
  43. CYCLOPHOSPHAMIDE. [Suspect]
     Active Substance: CYCLOPHOSPHAMIDE
     Indication: LUPUS NEPHRITIS
     Route: 065
     Dates: start: 20170330
  44. PREDNISONE. [Suspect]
     Active Substance: PREDNISONE
     Route: 065
     Dates: start: 20170504, end: 20170517
  45. PREDNISONE. [Suspect]
     Active Substance: PREDNISONE
     Route: 065
     Dates: start: 20170616, end: 20180629
  46. PREDNISONE. [Suspect]
     Active Substance: PREDNISONE
     Route: 065
     Dates: start: 20170707, end: 20170713
  47. PREDNISONE. [Suspect]
     Active Substance: PREDNISONE
     Route: 065
     Dates: start: 20170302, end: 20170302
  48. FUROSEMIDE. [Concomitant]
     Active Substance: FUROSEMIDE
     Indication: OEDEMA
     Route: 048
     Dates: start: 20170302, end: 20170315
  49. HYDROCORTISONE. [Concomitant]
     Active Substance: HYDROCORTISONE
     Indication: RASH
     Route: 061
     Dates: start: 20170728, end: 20170811
  50. BELIMUMAB [Suspect]
     Active Substance: BELIMUMAB
     Route: 065
     Dates: start: 20170622
  51. PREDNISONE. [Suspect]
     Active Substance: PREDNISONE
     Route: 065
     Dates: start: 20170602, end: 20170615
  52. PREDNISONE. [Suspect]
     Active Substance: PREDNISONE
     Route: 065
     Dates: start: 20170804
  53. DIPHENHYDRAMINE. [Concomitant]
     Active Substance: DIPHENHYDRAMINE
     Dosage: GIVEN 60 MINUTES (+/- 15?MINUTES) PRIOR TO RITUXIMAB
     Route: 065
     Dates: start: 20170413
  54. BIOTIN [Concomitant]
     Active Substance: BIOTIN
     Dosage: 500 MCG
     Route: 048
     Dates: start: 20170209
  55. CHOLECALCIFEROL [Concomitant]
     Active Substance: CHOLECALCIFEROL
     Dosage: 2000 UNITS
     Route: 048
  56. LISINOPRIL. [Concomitant]
     Active Substance: LISINOPRIL
     Indication: HYPERTENSION
     Route: 048
     Dates: start: 20170126, end: 20170315
  57. MINOXIDIL. [Concomitant]
     Active Substance: MINOXIDIL
     Indication: ALOPECIA
     Route: 061
     Dates: start: 20171028
  58. CYCLOPHOSPHAMIDE. [Suspect]
     Active Substance: CYCLOPHOSPHAMIDE
     Route: 065
     Dates: start: 20170413
  59. PREDNISONE. [Suspect]
     Active Substance: PREDNISONE
     Route: 065
     Dates: start: 20170331, end: 20170419
  60. PREDNISONE. [Suspect]
     Active Substance: PREDNISONE
     Route: 065
     Dates: start: 20170714, end: 20170720
  61. DEXAMETHASONE. [Concomitant]
     Active Substance: DEXAMETHASONE
     Indication: ALOPECIA
     Route: 048
     Dates: start: 20181008, end: 20181104

REACTIONS (1)
  - Ophthalmic herpes zoster [Not Recovered/Not Resolved]

NARRATIVE: CASE EVENT DATE: 20181126
